FAERS Safety Report 8785959 (Version 1)
Quarter: 2012Q4

REPORT INFORMATION
  Report Type: Spontaneous
  Country: TR (occurrence: None)
  Receive Date: 20120905
  Receipt Date: 20120905
  Transmission Date: 20130627
  Serious: Yes (Other)
  Sender: FDA-Public Use
  Company Number: FK201202512

PATIENT
  Age: 7 Year
  Sex: Female

DRUGS (3)
  1. PROPRANOLOL HYDROCHLORIDE [Suspect]
     Indication: CARDIOVASCULAR EVENT PROPHYLAXIS
  2. VERAPAMIL (VERAPAMIL) [Concomitant]
  3. ADENOSINE (ADENOSINE) [Concomitant]

REACTIONS (1)
  - Accelerated idioventricular rhythm [None]
